FAERS Safety Report 6430516-8 (Version None)
Quarter: 2009Q4

REPORT INFORMATION
  Report Type: 
  Country: None (occurrence: None)
  Receive Date: 20091106
  Receipt Date: 20091102
  Transmission Date: 20100525
  Serious: Yes (Hospitalization)
  Sender: FDA-Public Use
  Company Number: A0796409A

PATIENT
  Age: 81 Year
  Sex: Female
  Weight: 89.1 kg

DRUGS (1)
  1. AVANDIA [Suspect]
     Dosage: 4MG PER DAY
     Route: 048
     Dates: start: 20000701, end: 20061101

REACTIONS (2)
  - CARDIAC DISORDER [None]
  - THROMBOSIS [None]
